FAERS Safety Report 9034853 (Version 1)
Quarter: 2013Q1

REPORT INFORMATION
  Report Type: Spontaneous
  Country: US (occurrence: None)
  Receive Date: 20130116
  Receipt Date: 20130116
  Transmission Date: 20140127
  Serious: Yes (Hospitalization)
  Sender: FDA-Public Use
  Company Number: None

PATIENT
  Age: 62 Year
  Sex: Male
  Weight: 81 kg

DRUGS (1)
  1. RITUXIMAB [Suspect]
     Indication: MANTLE CELL LYMPHOMA
     Dosage: 750 MG  ONCE  IV
     Route: 042
     Dates: start: 20121031, end: 20121031

REACTIONS (5)
  - Vomiting [None]
  - Chest discomfort [None]
  - Nausea [None]
  - Angina pectoris [None]
  - Abdominal discomfort [None]
